FAERS Safety Report 4537057-3 (Version None)
Quarter: 2004Q4

REPORT INFORMATION
  Report Type: 
  Country: None (occurrence: None)
  Receive Date: 20041223
  Receipt Date: 20041110
  Transmission Date: 20050328
  Serious: No
  Sender: FDA-Public Use
  Company Number: US-BRISTOL-MYERS SQUIBB COMPANY-12760807

PATIENT
  Age: 50 Year
  Sex: Male
  Weight: 91 kg

DRUGS (10)
  1. REYATAZ [Suspect]
     Indication: HIV INFECTION
     Route: 048
     Dates: start: 20040101
  2. NORVIR [Concomitant]
  3. VIREAD [Concomitant]
  4. ZIAGEN [Concomitant]
  5. METHADONE HCL [Concomitant]
  6. VITAMIN C [Concomitant]
  7. MULTI-VITAMIN [Concomitant]
  8. NEXIUM [Concomitant]
  9. VIAGRA [Concomitant]
  10. TYLENOL (CAPLET) [Concomitant]

REACTIONS (6)
  - ARTHRALGIA [None]
  - ASTHENIA [None]
  - HEADACHE [None]
  - INSOMNIA [None]
  - LETHARGY [None]
  - RHINORRHOEA [None]
